FAERS Safety Report 18430231 (Version 1)
Quarter: 2020Q4

REPORT INFORMATION
  Report Type: Report from Study
  Country: None (occurrence: BR)
  Receive Date: 20201027
  Receipt Date: 20201027
  Transmission Date: 20210114
  Serious: Yes (Other)
  Sender: FDA-Public Use
  Company Number: BR-ABBVIE-20K-020-3621281-00

PATIENT
  Sex: Female
  Weight: 71 kg

DRUGS (4)
  1. METFORMIN [Concomitant]
     Active Substance: METFORMIN HYDROCHLORIDE
     Dosage: ONE TABLET AT MORNING AND ONE AT NIGHT
     Route: 048
     Dates: start: 2020
  2. HUMIRA [Suspect]
     Active Substance: ADALIMUMAB
     Indication: RHEUMATOID ARTHRITIS
     Route: 058
     Dates: start: 2019, end: 2019
  3. METFORMIN [Concomitant]
     Active Substance: METFORMIN HYDROCHLORIDE
     Indication: DIABETES MELLITUS
     Dosage: ONE TABLET AT MORNING AND ONE AT NIGHT
     Route: 048
     Dates: end: 2020
  4. GLYXAMBI [Concomitant]
     Active Substance: EMPAGLIFLOZIN\LINAGLIPTIN
     Indication: DIABETES MELLITUS
     Dosage: AT MORNING
     Route: 048
     Dates: start: 2020

REACTIONS (6)
  - Therapeutic product effect incomplete [Recovered/Resolved]
  - Diabetes mellitus [Recovered/Resolved]
  - Dizziness [Recovered/Resolved]
  - Labyrinthitis [Recovered/Resolved]
  - Malaise [Unknown]
  - Blood glucose abnormal [Unknown]

NARRATIVE: CASE EVENT DATE: 2019
